FAERS Safety Report 25809140 (Version 1)
Quarter: 2025Q3

REPORT INFORMATION
  Report Type: Spontaneous
  Country: US (occurrence: None)
  Receive Date: 20250916
  Receipt Date: 20250916
  Transmission Date: 20251021
  Serious: Yes (Disabling, Other)
  Sender: FDA-CTU
  Company Number: None

PATIENT
  Age: 56 Year
  Weight: 67.5 kg

DRUGS (1)
  1. OCREVUS [Suspect]
     Active Substance: OCRELIZUMAB
     Indication: Multiple sclerosis
     Dates: start: 20170501, end: 20180501

REACTIONS (6)
  - IgG deficiency [None]
  - Selective IgA immunodeficiency [None]
  - Selective IgM immunodeficiency [None]
  - Product communication issue [None]
  - Drug monitoring procedure not performed [None]
  - Infection [None]

NARRATIVE: CASE EVENT DATE: 20170501
